FAERS Safety Report 16566033 (Version 1)
Quarter: 2019Q3

REPORT INFORMATION
  Report Type: Spontaneous
  Country: IT (occurrence: IT)
  Receive Date: 20190712
  Receipt Date: 20190712
  Transmission Date: 20191004
  Serious: Yes (Other)
  Sender: FDA-Public Use
  Company Number: IT-PFIZER INC-2019295025

PATIENT
  Age: 90 Year
  Sex: Male

DRUGS (4)
  1. LASIX [Concomitant]
     Active Substance: FUROSEMIDE
     Dosage: UNK
  2. CORDARONE [Suspect]
     Active Substance: AMIODARONE HYDROCHLORIDE
     Dosage: 200 MG, QD
     Route: 048
     Dates: start: 20180607, end: 20180613
  3. CARDICOR [Concomitant]
     Active Substance: BISOPROLOL
     Dosage: UNK
  4. CARDURA [Concomitant]
     Active Substance: DOXAZOSIN MESYLATE
     Dosage: 4 MG

REACTIONS (3)
  - Dyspnoea [Recovering/Resolving]
  - Palpitations [Recovering/Resolving]
  - Tachyarrhythmia [Recovering/Resolving]

NARRATIVE: CASE EVENT DATE: 20180613
